FAERS Safety Report 16557150 (Version 1)
Quarter: 2019Q3

REPORT INFORMATION
  Report Type: Other
  Country: CA (occurrence: CA)
  Receive Date: 20190711
  Receipt Date: 20190711
  Transmission Date: 20191004
  Serious: Yes (Death, Hospitalization)
  Sender: FDA-Public Use
  Company Number: CA-PFIZER INC-2019292117

PATIENT
  Age: 33 Year
  Sex: Female

DRUGS (4)
  1. VENLAFAXINE HCL [Suspect]
     Active Substance: VENLAFAXINE HYDROCHLORIDE
     Dosage: UNK
  2. NOZINAN [LEVOMEPROMAZINE] [Concomitant]
     Active Substance: LEVOMEPROMAZINE
     Dosage: UNK
  3. TYLENOL [Concomitant]
     Active Substance: ACETAMINOPHEN
     Dosage: UNK
  4. MANERIX [Interacting]
     Active Substance: MOCLOBEMIDE
     Dosage: UNK

REACTIONS (7)
  - Disseminated intravascular coagulation [Fatal]
  - Toxicity to various agents [Fatal]
  - Intentional overdose [Fatal]
  - Neuroleptic malignant syndrome [Fatal]
  - Completed suicide [Fatal]
  - Drug interaction [Fatal]
  - Serotonin syndrome [Fatal]
